FAERS Safety Report 4967762-6 (Version None)
Quarter: 2006Q2

REPORT INFORMATION
  Report Type: 
  Country: None (occurrence: None)
  Receive Date: 20060410
  Receipt Date: 20051025
  Transmission Date: 20061013
  Serious: Yes (Hospitalization, Other)
  Sender: FDA-Public Use
  Company Number: US-MERCK-0510USA09260

PATIENT
  Age: 41 Year
  Sex: Female
  Weight: 77 kg

DRUGS (11)
  1. VIOXX [Suspect]
     Indication: ARTHRITIS
     Route: 048
     Dates: start: 19990911, end: 20040930
  2. VIOXX [Suspect]
     Indication: SYSTEMIC LUPUS ERYTHEMATOSUS
     Route: 048
     Dates: start: 19990911, end: 20040930
  3. ORPHENADRINE [Concomitant]
     Indication: PAIN
     Route: 065
     Dates: start: 19990501, end: 20040801
  4. ORPHENADRINE [Concomitant]
     Indication: MUSCLE SPASMS
     Route: 065
     Dates: start: 19990501, end: 20040801
  5. CELEBREX [Concomitant]
     Indication: PAIN
     Route: 065
     Dates: start: 19990701, end: 19991101
  6. CARDIZEM [Concomitant]
     Indication: HYPERTENSION
     Route: 065
     Dates: start: 19990801, end: 20020501
  7. FOSAMAX [Concomitant]
     Indication: OSTEOPOROSIS
     Route: 065
     Dates: start: 19990201, end: 20040801
  8. HYDROXYCHLOROQUINE SULFATE [Concomitant]
     Indication: SYSTEMIC LUPUS ERYTHEMATOSUS
     Route: 065
     Dates: start: 19990101, end: 20040801
  9. METHYLPREDNISOLONE [Concomitant]
     Indication: HORMONE REPLACEMENT THERAPY
     Route: 065
     Dates: start: 19990701, end: 20041001
  10. PREDNISONE [Concomitant]
     Indication: HORMONE REPLACEMENT THERAPY
     Route: 065
     Dates: start: 19990201, end: 20040801
  11. KLOR-CON [Concomitant]
     Indication: CARDIAC DISORDER
     Route: 065
     Dates: start: 19990101, end: 20040801

REACTIONS (8)
  - ANGINA PECTORIS [None]
  - CONVULSION [None]
  - DYSPNOEA [None]
  - GASTROOESOPHAGEAL REFLUX DISEASE [None]
  - GENITOURINARY TRACT NEOPLASM [None]
  - HYSTERECTOMY [None]
  - INFECTION [None]
  - PULMONARY EMBOLISM [None]
